FAERS Safety Report 5634750-6 (Version None)
Quarter: 2008Q1

REPORT INFORMATION
  Report Type: 
  Country: None (occurrence: None)
  Receive Date: 20080221
  Receipt Date: 20080221
  Transmission Date: 20080703
  Serious: Yes (Hospitalization)
  Sender: FDA-Public Use
  Company Number: None

PATIENT
  Age: 71 Year
  Sex: Female
  Weight: 52.6173 kg

DRUGS (6)
  1. GEMCITABINE [Suspect]
     Indication: LUNG ADENOCARCINOMA
     Dosage: 800 MG/M2 EVERY TWO WEEKS IV
     Route: 042
     Dates: start: 20071101, end: 20080207
  2. OXALIPLATIN [Suspect]
     Indication: LUNG ADENOCARCINOMA
     Dosage: 80 MG/M2 EVERY TWO WEEKS IV
     Route: 042
     Dates: start: 20071101, end: 20080207
  3. COMPAZINE [Concomitant]
  4. XANAX [Concomitant]
  5. DILANTIN [Concomitant]
  6. LEXAPRO [Concomitant]

REACTIONS (2)
  - EPISTAXIS [None]
  - THROMBOCYTOPENIA [None]
